FAERS Safety Report 20866812 (Version 3)
Quarter: 2022Q4

REPORT INFORMATION
  Report Type: Other
  Country: MX (occurrence: None)
  Receive Date: 20220524
  Receipt Date: 20221114
  Transmission Date: 20230112
  Serious: Yes (Other)
  Sender: FDA-Public Use
  Company Number: MX-ROCHE-3084429

PATIENT
  Age: 36 Year
  Sex: Female
  Weight: 90.9 kg

DRUGS (7)
  1. TOCILIZUMAB [Suspect]
     Active Substance: TOCILIZUMAB
     Indication: Rheumatoid arthritis
     Dosage: TOCILIZUMAB PREFILLED SYRINGES 162MG/0.9ML
     Route: 058
     Dates: start: 20211218
  2. TOCILIZUMAB [Suspect]
     Active Substance: TOCILIZUMAB
     Dosage: TOCILIZUMAB PREFILLED SYRINGES 162MG/0.9ML
     Route: 058
     Dates: start: 20211218
  3. PLAQUENIL [Concomitant]
     Active Substance: HYDROXYCHLOROQUINE SULFATE
     Dosage: 1 TABLET AT NIGHT
     Route: 048
  4. METICORTEN [Concomitant]
     Active Substance: PREDNISONE
     Route: 048
  5. CLONIXIN\CYCLOBENZAPRINE [Concomitant]
     Active Substance: CLONIXIN\CYCLOBENZAPRINE
     Dosage: 125MG OF LYSINE CLONIXINATE AND 5MG OF CYCLOBENZAPRINE
     Route: 048
  6. SILARINE [Concomitant]
  7. DEFLAZACORT [Concomitant]
     Active Substance: DEFLAZACORT

REACTIONS (8)
  - Liver injury [Unknown]
  - Biliary cirrhosis [Unknown]
  - Renal injury [Not Recovered/Not Resolved]
  - Swelling [Recovered/Resolved]
  - Hypersensitivity [Recovered/Resolved]
  - Off label use [Unknown]
  - Swelling [Unknown]
  - Drug intolerance [Unknown]

NARRATIVE: CASE EVENT DATE: 20220101
